FAERS Safety Report 19411736 (Version 3)
Quarter: 2022Q1

REPORT INFORMATION
  Report Type: Report from Study
  Country: NL (occurrence: NL)
  Receive Date: 20210614
  Receipt Date: 20220114
  Transmission Date: 20220423
  Serious: Yes (Hospitalization)
  Sender: FDA-Public Use
  Company Number: NL-GLAXOSMITHKLINE-NL2021123803

PATIENT
  Age: 74 Year
  Sex: Female
  Weight: 81 kg

DRUGS (5)
  1. CYCLOPHOSPHAMIDE [Suspect]
     Active Substance: CYCLOPHOSPHAMIDE
     Indication: Non-small cell lung cancer
     Dosage: 1128 MG, CYC
     Route: 042
     Dates: start: 20210426
  2. FLUDARABINE PHOSPHATE [Suspect]
     Active Substance: FLUDARABINE PHOSPHATE
     Indication: Non-small cell lung cancer
     Dosage: 43 MG, CYC
     Route: 042
     Dates: start: 20210426
  3. VALACYCLOVIR HYDROCHLORIDE [Suspect]
     Active Substance: VALACYCLOVIR HYDROCHLORIDE
     Indication: Prophylaxis
     Dosage: 500 MG, 1D
     Route: 048
     Dates: start: 20210510, end: 20210611
  4. SULFAMETHOXAZOLE\TRIMETHOPRIM [Suspect]
     Active Substance: SULFAMETHOXAZOLE\TRIMETHOPRIM
     Indication: Prophylaxis
     Dosage: 80 MG, 1D
     Route: 048
     Dates: start: 20210513, end: 20210603
  5. MESNA [Concomitant]
     Active Substance: MESNA
     Indication: Non-small cell lung cancer
     Dosage: 780 MG, CYC
     Route: 042
     Dates: start: 20210426

REACTIONS (1)
  - Toxic skin eruption [Recovered/Resolved with Sequelae]

NARRATIVE: CASE EVENT DATE: 20210607
